FAERS Safety Report 11616998 (Version 3)
Quarter: 2016Q3

REPORT INFORMATION
  Report Type: Spontaneous
  Country: US (occurrence: US)
  Receive Date: 20151009
  Receipt Date: 20160803
  Transmission Date: 20161109
  Serious: Yes (Other)
  Sender: FDA-Public Use
  Company Number: US-BAYER-2015-435114

PATIENT
  Sex: Male

DRUGS (9)
  1. METOPROLOL. [Concomitant]
     Active Substance: METOPROLOL
     Indication: HYPERTENSION
     Dosage: 50 MG, QD
  2. PRAVASTATIN. [Concomitant]
     Active Substance: PRAVASTATIN
     Indication: BLOOD CHOLESTEROL
     Dosage: 40 MG, QD
  3. GABAPENTIN. [Concomitant]
     Active Substance: GABAPENTIN
     Indication: NEUROPATHY PERIPHERAL
     Dosage: 300MG 12 PER DAY
  4. LISINOPRIL. [Concomitant]
     Active Substance: LISINOPRIL
     Indication: HYPERTENSION
     Dosage: 20 /12.5 1 PER DAY
  5. AVELOX [Suspect]
     Active Substance: MOXIFLOXACIN HYDROCHLORIDE
     Indication: NASOPHARYNGITIS
  6. PLAVIX [Concomitant]
     Active Substance: CLOPIDOGREL BISULFATE
     Dosage: 75 MG, QD
  7. OFLOXACIN. [Suspect]
     Active Substance: OFLOXACIN
     Indication: EAR INFECTION
     Dosage: 0.3 %, UNK
     Dates: start: 20090922
  8. AVELOX [Suspect]
     Active Substance: MOXIFLOXACIN HYDROCHLORIDE
     Indication: SINUSITIS
     Dosage: 400 MG, UNK
     Dates: start: 20090927
  9. ELAVIL [Concomitant]
     Active Substance: AMITRIPTYLINE HYDROCHLORIDE
     Indication: SLEEP DISORDER THERAPY
     Dosage: 25 MG, QD

REACTIONS (12)
  - Injury [None]
  - Anxiety [None]
  - Neuropathy peripheral [None]
  - Pain [None]
  - Skin injury [None]
  - Cardiovascular disorder [None]
  - Musculoskeletal injury [None]
  - Mental disorder [None]
  - Nervous system disorder [None]
  - Anhedonia [None]
  - Emotional distress [None]
  - Musculoskeletal pain [None]

NARRATIVE: CASE EVENT DATE: 2009
